FAERS Safety Report 26074199 (Version 1)
Quarter: 2025Q4

REPORT INFORMATION
  Report Type: Spontaneous
  Country: US (occurrence: US)
  Receive Date: 20251121
  Receipt Date: 20251121
  Transmission Date: 20260117
  Serious: No
  Sender: Kenvue
  Company Number: US-KENVUE-20251107012

PATIENT
  Age: 75 Year
  Sex: Female

DRUGS (1)
  1. MENS ROGAINE EXTRA STRENGTH [Suspect]
     Active Substance: MINOXIDIL
     Indication: Alopecia
     Dosage: A SMALL AMOUNT APPLIED WITH A MAKEUP BRUSH, ONCE A DAY (IN THE EVENING)
     Dates: start: 20251017, end: 2025

REACTIONS (2)
  - Hair colour changes [Recovering/Resolving]
  - Off label use [Unknown]

NARRATIVE: CASE EVENT DATE: 20251001
